FAERS Safety Report 6988732-2 (Version None)
Quarter: 2010Q3

REPORT INFORMATION
  Report Type: 
  Country: None (occurrence: None)
  Receive Date: 20100916
  Receipt Date: 20100910
  Transmission Date: 20110219
  Serious: Yes (Other)
  Sender: FDA-Public Use
  Company Number: US-RB-013700-10

PATIENT
  Age: 59 Year
  Sex: Male

DRUGS (1)
  1. SUBOXONE [Suspect]
     Indication: PRODUCT USED FOR UNKNOWN INDICATION
     Dosage: UNKNOWN DOSING DETAILS
     Route: 065

REACTIONS (5)
  - CARDIAC FAILURE CONGESTIVE [None]
  - HEADACHE [None]
  - INSOMNIA [None]
  - MASS [None]
  - NAUSEA [None]
